FAERS Safety Report 22996168 (Version 3)
Quarter: 2023Q4

REPORT INFORMATION
  Report Type: Spontaneous
  Country: JP (occurrence: JP)
  Receive Date: 20230927
  Receipt Date: 20231113
  Transmission Date: 20240110
  Serious: Yes (Other)
  Sender: FDA-Public Use
  Company Number: JP-002147023-NVSJ2023JP013487

PATIENT
  Age: 66 Year
  Sex: Male

DRUGS (2)
  1. BEOVU [Suspect]
     Active Substance: BROLUCIZUMAB-DBLL
     Indication: Age-related macular degeneration
     Dosage: 6 MG
     Route: 031
     Dates: start: 20230710, end: 20230710
  2. BEOVU [Suspect]
     Active Substance: BROLUCIZUMAB-DBLL
     Dosage: 6 MG
     Route: 031
     Dates: start: 20230904, end: 20230904

REACTIONS (7)
  - Retinal exudates [Unknown]
  - Blindness [Not Recovered/Not Resolved]
  - Age-related macular degeneration [Unknown]
  - Disease progression [Unknown]
  - Iritis [Recovered/Resolved with Sequelae]
  - Vision blurred [Unknown]
  - Vitreous opacities [Recovered/Resolved]

NARRATIVE: CASE EVENT DATE: 20230905
